FAERS Safety Report 10245104 (Version 1)
Quarter: 2014Q2

REPORT INFORMATION
  Report Type: Spontaneous
  Country: GB (occurrence: None)
  Receive Date: 20140616
  Receipt Date: 20140616
  Transmission Date: 20141212
  Serious: Yes (Life-Threatening)
  Sender: FDA-Public Use
  Company Number: AUR-APL-2014-06262

PATIENT
  Age: 71 Year
  Sex: Male
  Weight: 89 kg

DRUGS (8)
  1. PIOGLITAZONE 45MG (PIOGLITAZONE) UNKNOWN, 45MG [Suspect]
     Indication: DIABETES MELLITUS
     Dates: start: 20041129, end: 20140520
  2. ASPIRIN (ACETYLSALICYLIC ACID) [Concomitant]
  3. CITALOPRAM (CITALOPRAM) [Concomitant]
  4. METFORMIN (METFORMIN) [Concomitant]
  5. OMEPRAZOLE (OMEPRAZOLE) [Concomitant]
  6. PROSTAP (LEUPRORELIN ACETATE) [Concomitant]
  7. REPAGLINIDE (REPAGLINIDE) [Concomitant]
  8. TOLTERODINE (TOLTERODINE) [Concomitant]

REACTIONS (2)
  - Bladder adenocarcinoma stage unspecified [None]
  - Haematuria [None]
